FAERS Safety Report 13641708 (Version 1)
Quarter: 2017Q2

REPORT INFORMATION
  Report Type: Spontaneous
  Country: US (occurrence: US)
  Receive Date: 20170609
  Receipt Date: 20170609
  Transmission Date: 20170830
  Serious: Yes (Disabling, Other)
  Sender: FDA-Public Use
  Company Number: None

PATIENT
  Age: 28 Year
  Sex: Female
  Weight: 90 kg

DRUGS (4)
  1. WOMEN^S MULTIVITAMIN [Concomitant]
  2. FIBER SUPPLEMENT [Concomitant]
  3. MIBELAS 24 FE [Suspect]
     Active Substance: ETHINYL ESTRADIOL\NORETHINDRONE ACETATE
     Indication: CONTRACEPTION
     Dosage: ?          QUANTITY:1 TABLET(S);?
     Route: 048
     Dates: start: 20170414, end: 20170430
  4. MINASTRIN 24 FE [Concomitant]
     Active Substance: ETHINYL ESTRADIOL\NORETHINDRONE ACETATE

REACTIONS (10)
  - Insomnia [None]
  - Menstruation irregular [None]
  - Product use issue [None]
  - Nausea [None]
  - Crying [None]
  - Metrorrhagia [None]
  - Diarrhoea [None]
  - Muscle spasms [None]
  - Headache [None]
  - Mood swings [None]

NARRATIVE: CASE EVENT DATE: 20170417
